FAERS Safety Report 8345167-8 (Version None)
Quarter: 2012Q2

REPORT INFORMATION
  Report Type: 
  Country: None (occurrence: None)
  Receive Date: 20120508
  Receipt Date: 20120427
  Transmission Date: 20120825
  Serious: Yes (Hospitalization, Other)
  Sender: FDA-Public Use
  Company Number: PHHY2011US40165

PATIENT
  Sex: Male

DRUGS (4)
  1. METHADON HYDROCHLORIDE TAB [Suspect]
     Indication: BACK PAIN
     Route: 064
  2. RHUMAB-E25 [Suspect]
     Indication: ASTHMA
     Dosage: MATERNAL DOSE: 150 MG, Q4W
     Route: 064
     Dates: start: 20100618
  3. RHUMAB-E25 [Suspect]
     Route: 064
     Dates: start: 20110330
  4. MORPHINE SULFATE [Suspect]
     Indication: BACK PAIN
     Route: 064

REACTIONS (6)
  - DRUG WITHDRAWAL SYNDROME [None]
  - FEEDING DISORDER NEONATAL [None]
  - BODY HEIGHT BELOW NORMAL [None]
  - ANAEMIA [None]
  - UNDERWEIGHT [None]
  - FOETAL EXPOSURE DURING PREGNANCY [None]
